FAERS Safety Report 9322481 (Version 2)
Quarter: 2013Q3

REPORT INFORMATION
  Report Type: Report from Study
  Country: AU (occurrence: AU)
  Receive Date: 20130531
  Receipt Date: 20130802
  Transmission Date: 20140515
  Serious: Yes (Hospitalization)
  Sender: FDA-Public Use
  Company Number: AU-VERTEX PHARMACEUTICALS INC-2013-006632

PATIENT
  Age: 59 Year
  Sex: Male
  Weight: 87 kg

DRUGS (10)
  1. BLINDED PRE-TREATMENT [Suspect]
     Indication: CHRONIC HEPATITIS C
     Dosage: 750 MG, TID, TABLET
     Route: 048
     Dates: start: 20121101, end: 20130123
  2. BLINDED TMC435 [Suspect]
     Indication: CHRONIC HEPATITIS C
     Dosage: 750 MG, TID, TABLET
     Route: 048
     Dates: start: 20121101, end: 20130123
  3. BLINDED VX-950 (TELAPREVIR) [Suspect]
     Indication: CHRONIC HEPATITIS C
     Dosage: 750 MG, TID, TABLET
     Route: 048
     Dates: start: 20121101, end: 20130123
  4. PEGASYS [Suspect]
     Indication: CHRONIC HEPATITIS C
     Dosage: DOSAGE FORM: INJECTION
     Route: 058
     Dates: start: 20121101, end: 20130412
  5. COPEGUS [Suspect]
     Indication: CHRONIC HEPATITIS C
     Dosage: DOSAGE FORM: TABLET
     Route: 048
     Dates: start: 20121101, end: 20130417
  6. ELOCON CREAM [Concomitant]
     Indication: RASH
     Dosage: 1 DF, PRN
     Route: 061
     Dates: start: 20130124
  7. DERMAVEEN [Concomitant]
     Indication: PRURITUS
     Dosage: 1 DF, PRN
     Route: 061
     Dates: start: 20130122
  8. DERMAVEEN [Concomitant]
     Indication: RASH
  9. NEXIUM [Concomitant]
     Indication: PEPTIC ULCER
     Dosage: STARTED PRE-TRIAL
     Route: 048
  10. TEVETEN PLUS [Concomitant]
     Indication: HYPERTENSION
     Dosage: STARTED PRE-TRIAL
     Route: 048

REACTIONS (1)
  - Arthritis [Recovered/Resolved]
